FAERS Safety Report 4344085-X (Version None)
Quarter: 2004Q2

REPORT INFORMATION
  Report Type: 
  Country: None (occurrence: None)
  Receive Date: 20040422
  Receipt Date: 20040412
  Transmission Date: 20050107
  Serious: Yes (Hospitalization, Disabling)
  Sender: FDA-Public Use
  Company Number: UA-GLAXOSMITHKLINE-B0329741A

PATIENT
  Age: 18 Year
  Sex: Male

DRUGS (2)
  1. ZEFFIX [Suspect]
     Dosage: 100MG FOUR TIMES PER DAY
     Dates: start: 20031101, end: 20031201
  2. INTRON A [Suspect]
     Dosage: 3MU FOUR TIMES PER DAY
     Route: 058
     Dates: start: 20031101, end: 20031201

REACTIONS (2)
  - AUTOIMMUNE HEPATITIS [None]
  - VASCULITIS [None]
